FAERS Safety Report 13113268 (Version 1)
Quarter: 2017Q1

REPORT INFORMATION
  Report Type: Spontaneous
  Country: NL (occurrence: NL)
  Receive Date: 20170113
  Receipt Date: 20170113
  Transmission Date: 20170428
  Serious: Yes (Other)
  Sender: FDA-Public Use
  Company Number: NL-GLAXOSMITHKLINE-NL2017GSK002191

PATIENT
  Sex: Male

DRUGS (1)
  1. FLIXOTIDE 125 [Suspect]
     Active Substance: FLUTICASONE PROPIONATE
     Indication: PRODUCT USED FOR UNKNOWN INDICATION
     Dosage: UNK
     Dates: start: 201607

REACTIONS (4)
  - Pneumonia [Not Recovered/Not Resolved]
  - Product packaging quantity issue [Unknown]
  - Device use error [Unknown]
  - Underdose [Unknown]
